FAERS Safety Report 9246671 (Version 1)
Quarter: 2013Q2

REPORT INFORMATION
  Report Type: Spontaneous
  Country: US (occurrence: US)
  Receive Date: 20130422
  Receipt Date: 20130422
  Transmission Date: 20140414
  Serious: No
  Sender: FDA-Public Use
  Company Number: US-ASTRAZENECA-2013SE24439

PATIENT
  Age: 1 Year
  Sex: Female
  Weight: 9.1 kg

DRUGS (2)
  1. NEXIUM [Suspect]
     Indication: GASTROOESOPHAGEAL REFLUX DISEASE
     Route: 048
     Dates: start: 201209
  2. NEXIUM [Suspect]
     Indication: GASTROOESOPHAGEAL REFLUX DISEASE
     Route: 048

REACTIONS (6)
  - Crying [Unknown]
  - Hiccups [Unknown]
  - Hypophagia [Unknown]
  - Hunger [Unknown]
  - Insomnia [Unknown]
  - Off label use [Unknown]
